FAERS Safety Report 24715302 (Version 2)
Quarter: 2024Q4

REPORT INFORMATION
  Report Type: Spontaneous
  Country: HR (occurrence: HR)
  Receive Date: 20241210
  Receipt Date: 20241223
  Transmission Date: 20250115
  Serious: Yes (Hospitalization, Other)
  Sender: MERCK
  Company Number: HR-009507513-2412HRV002600

PATIENT
  Sex: Male

DRUGS (3)
  1. KEYTRUDA [Suspect]
     Active Substance: PEMBROLIZUMAB
     Indication: Lung squamous cell carcinoma recurrent
     Dosage: UNK
     Dates: start: 2023
  2. PACLITAXEL [Suspect]
     Active Substance: PACLITAXEL
     Indication: Lung squamous cell carcinoma recurrent
     Dosage: UNK
     Dates: start: 2023
  3. CARBOPLATIN [Suspect]
     Active Substance: CARBOPLATIN
     Indication: Lung squamous cell carcinoma recurrent
     Dosage: UNK
     Dates: start: 2023

REACTIONS (10)
  - Lung abscess [Unknown]
  - Spinal compression fracture [Unknown]
  - Malignant neoplasm progression [Unknown]
  - Emphysema [Unknown]
  - Pulmonary pneumatocele [Unknown]
  - Lung infiltration [Unknown]
  - Pleural adhesion [Unknown]
  - Lymphadenopathy [Unknown]
  - Splenic calcification [Unknown]
  - Pulmonary calcification [Unknown]

NARRATIVE: CASE EVENT DATE: 20230901
